FAERS Safety Report 5822339-5 (Version None)
Quarter: 2008Q3

REPORT INFORMATION
  Report Type: 
  Country: None (occurrence: None)
  Receive Date: 20080725
  Receipt Date: 20080718
  Transmission Date: 20090109
  Serious: Yes (Death)
  Sender: FDA-Public Use
  Company Number: US-AVENTIS-200814093US

PATIENT
  Age: 83 Year
  Sex: Female

DRUGS (6)
  1. LASIX [Suspect]
     Route: 048
     Dates: start: 20010101, end: 20070601
  2. SPIRONOLACTONE [Suspect]
     Dosage: DOSE: UNK
     Dates: start: 20060201
  3. POTASSIUM CHLORIDE [Concomitant]
     Dates: end: 20060201
  4. WARFARIN SODIUM [Concomitant]
     Dosage: DOSE: UNK
  5. COREG [Concomitant]
     Dosage: DOSE: UNK
  6. MAVIK [Concomitant]
     Dosage: DOSE: UNK

REACTIONS (2)
  - DEATH [None]
  - DIARRHOEA [None]
